FAERS Safety Report 24296920 (Version 2)
Quarter: 2024Q4

REPORT INFORMATION
  Report Type: Report from Study
  Country: EG (occurrence: EG)
  Receive Date: 20240909
  Receipt Date: 20241008
  Transmission Date: 20250114
  Serious: Yes (Other)
  Sender: BIOGEN
  Company Number: EG-BIOGEN-2024BI01281031

PATIENT
  Age: 26 Year
  Sex: Female

DRUGS (1)
  1. TYSABRI [Suspect]
     Active Substance: NATALIZUMAB
     Indication: Multiple sclerosis
     Route: 050
     Dates: start: 20230823, end: 20240902

REACTIONS (2)
  - Caesarean section [Recovered/Resolved]
  - Maternal exposure during pregnancy [Recovered/Resolved]

NARRATIVE: CASE EVENT DATE: 20230913
